FAERS Safety Report 12672263 (Version 3)
Quarter: 2016Q4

REPORT INFORMATION
  Report Type: Spontaneous
  Country: US (occurrence: US)
  Receive Date: 20160822
  Receipt Date: 20161223
  Transmission Date: 20170207
  Serious: Yes (Other)
  Sender: FDA-Public Use
  Company Number: US-PFIZER INC-2016392912

PATIENT
  Age: 65 Year
  Sex: Female

DRUGS (4)
  1. DAYPRO [Suspect]
     Active Substance: OXAPROZIN
     Indication: RHEUMATOID ARTHRITIS
     Dosage: 600 MG, 2X/DAY
     Dates: start: 20160719, end: 20160809
  2. METHOTREXATE. [Concomitant]
     Active Substance: METHOTREXATE
     Dosage: INJECTED FOR YEARS
  3. DAYPRO [Suspect]
     Active Substance: OXAPROZIN
     Indication: PAIN
  4. XELJANZ [Suspect]
     Active Substance: TOFACITINIB CITRATE
     Indication: RHEUMATOID ARTHRITIS
     Dosage: 5 MG, 2X/DAY
     Dates: start: 20160416

REACTIONS (4)
  - Anorectal disorder [Not Recovered/Not Resolved]
  - Lower limb fracture [Not Recovered/Not Resolved]
  - Stevens-Johnson syndrome [Not Recovered/Not Resolved]
  - Foot fracture [Not Recovered/Not Resolved]

NARRATIVE: CASE EVENT DATE: 20160804
